FAERS Safety Report 6361116-6 (Version None)
Quarter: 2009Q3

REPORT INFORMATION
  Report Type: 
  Country: None (occurrence: None)
  Receive Date: 20090918
  Receipt Date: 20090915
  Transmission Date: 20100115
  Serious: Yes (Other)
  Sender: FDA-Public Use
  Company Number: CO-B.I. PHARMACEUTICALS,INC./RIDGEFIELD-2009-RA-00241RA

PATIENT
  Age: 50 Year
  Sex: Male

DRUGS (1)
  1. MICARDIS HCT [Suspect]
     Indication: HYPERTENSION
     Dosage: STRENGTH: 80/12.5 MG, DAILY DOSE: ONE TABLET DAILY
     Route: 048
     Dates: start: 20090701

REACTIONS (1)
  - CORONARY ARTERY DISEASE [None]
